FAERS Safety Report 8361963-5 (Version None)
Quarter: 2012Q2

REPORT INFORMATION
  Report Type: 
  Country: None (occurrence: None)
  Receive Date: 20120515
  Receipt Date: 20120509
  Transmission Date: 20120825
  Serious: Yes (Death, Hospitalization)
  Sender: FDA-Public Use
  Company Number: US-ACTELION-A-NJ2012-64844

PATIENT

DRUGS (3)
  1. TRACLEER [Suspect]
     Indication: PULMONARY ARTERIAL HYPERTENSION
     Dosage: UNK
     Route: 048
     Dates: start: 20060626, end: 20120224
  2. COUMADIN [Concomitant]
  3. PREDNISONE [Concomitant]

REACTIONS (4)
  - ACUTE ABDOMEN [None]
  - RENAL FAILURE ACUTE [None]
  - INTESTINAL OBSTRUCTION [None]
  - HYPOTENSION [None]
